FAERS Safety Report 8961668 (Version 1)
Quarter: 2012Q4

REPORT INFORMATION
  Report Type: Report from Study
  Country: CA (occurrence: CA)
  Receive Date: 20121212
  Receipt Date: 20121212
  Transmission Date: 20130627
  Serious: Yes (Other)
  Sender: FDA-Public Use
  Company Number: CA-ROCHE-1165171

PATIENT
  Age: 47 Year
  Sex: Male

DRUGS (1)
  1. OMALIZUMAB [Suspect]
     Indication: ASTHMA
     Route: 058
     Dates: start: 20060327

REACTIONS (22)
  - Fungal infection [Recovering/Resolving]
  - Urticaria [Unknown]
  - Nasopharyngitis [Unknown]
  - Pulmonary congestion [Unknown]
  - Bronchitis [Unknown]
  - Oropharyngeal pain [Unknown]
  - Blood pressure increased [Unknown]
  - Middle insomnia [Unknown]
  - Upper respiratory tract infection [Recovered/Resolved]
  - Oedema peripheral [Unknown]
  - Infection [Unknown]
  - Bacterial infection [Unknown]
  - Malaise [Unknown]
  - Asthma [Unknown]
  - Cough [Recovered/Resolved]
  - Blood immunoglobulin E increased [Unknown]
  - Fatigue [Unknown]
  - Pyrexia [Recovered/Resolved]
  - Pharyngitis [Unknown]
  - Pruritus [Unknown]
  - Pruritus [Unknown]
  - Rash [Unknown]
